FAERS Safety Report 21235875 (Version 1)
Quarter: 2022Q3

REPORT INFORMATION
  Report Type: Spontaneous
  Country: DE (occurrence: DE)
  Receive Date: 20220821
  Receipt Date: 20220821
  Transmission Date: 20221026
  Serious: Yes (Hospitalization)
  Sender: FDA-Public Use
  Company Number: DE-JNJFOC-20220823376

PATIENT
  Sex: Female
  Weight: 2.98 kg

DRUGS (3)
  1. STELARA [Suspect]
     Active Substance: USTEKINUMAB
     Indication: Colitis ulcerative
     Dosage: 1X
     Route: 064
     Dates: start: 20210413, end: 20210413
  2. LEVOTHYROXINE [Concomitant]
     Active Substance: LEVOTHYROXINE
     Route: 064
  3. MESALAMINE [Concomitant]
     Active Substance: MESALAMINE
     Dosage: 1X3
     Route: 064
     Dates: start: 20210525

REACTIONS (5)
  - Shoulder dystocia [Recovered/Resolved]
  - Transient tachypnoea of the newborn [Recovered/Resolved]
  - Cyanosis [Recovered/Resolved]
  - Temperature regulation disorder [Recovered/Resolved]
  - Foetal exposure during pregnancy [Recovered/Resolved]

NARRATIVE: CASE EVENT DATE: 20220101
